FAERS Safety Report 9557297 (Version 1)
Quarter: 2013Q3

REPORT INFORMATION
  Report Type: Spontaneous
  Country: US (occurrence: None)
  Receive Date: 20130724
  Receipt Date: 20130724
  Transmission Date: 20140515
  Serious: Yes (Other)
  Sender: FDA-Public Use
  Company Number: PHEH2013US007913

PATIENT
  Sex: Female

DRUGS (4)
  1. GILENYA [Suspect]
     Indication: RELAPSING-REMITTING MULTIPLE SCLEROSIS
     Route: 048
  2. ALBUTEROL (SALBUTAMOL) [Concomitant]
  3. METOPROLOL (METOPROLOL) [Concomitant]
  4. AMPYRA (FAMPRIDINE) [Concomitant]

REACTIONS (1)
  - White blood cell count decreased [None]
